FAERS Safety Report 7806186-0 (Version None)
Quarter: 2011Q4

REPORT INFORMATION
  Report Type: 
  Country: None (occurrence: None)
  Receive Date: 20111011
  Receipt Date: 20111003
  Transmission Date: 20120403
  Serious: Yes (Other)
  Sender: FDA-Public Use
  Company Number: US-ASTELLAS-2011US006438

PATIENT
  Sex: Female
  Weight: 82 kg

DRUGS (7)
  1. MYCOPHENOLATE MOFETIL (CELLCEPT) [Concomitant]
     Indication: LIVER TRANSPLANT
     Dosage: 250 MG, 6 TIMES DAILY
     Route: 048
  2. URSODIOL [Concomitant]
     Indication: CHOLELITHIASIS
     Dosage: 3 MG, BID
     Route: 048
  3. BENAZEPRIL HYDROCHLORIDE [Concomitant]
     Indication: HYPERTENSION
     Dosage: 20 MG, UID/QD
     Route: 048
  4. AMLODIPINE [Concomitant]
     Indication: HYPERTENSION
     Dosage: 5 MG, UID/QD
     Route: 048
  5. GLUCOTROL [Concomitant]
     Indication: DIABETES MELLITUS
     Dosage: 5 MG, BID
     Route: 048
  6. PROGRAF [Suspect]
     Indication: LIVER TRANSPLANT
     Dosage: 4 MG, BID
     Route: 048
     Dates: start: 20070801
  7. SULFAMETHOXAZOLE AND TRIMETHOPRIM [Concomitant]
     Indication: ANTIBIOTIC THERAPY
     Dosage: 800 MG, UID/QD
     Route: 048

REACTIONS (2)
  - CEREBROVASCULAR ACCIDENT [None]
  - APHASIA [None]
